FAERS Safety Report 14584146 (Version 3)
Quarter: 2019Q3

REPORT INFORMATION
  Report Type: Spontaneous
  Country: US (occurrence: US)
  Receive Date: 20180228
  Receipt Date: 20190801
  Transmission Date: 20191004
  Serious: Yes (Hospitalization)
  Sender: FDA-Public Use
  Company Number: US-ASTRAZENECA-2018SE24631

PATIENT
  Age: 85 Year
  Sex: Female

DRUGS (1)
  1. NEXIUM 24HR [Suspect]
     Active Substance: ESOMEPRAZOLE MAGNESIUM
     Indication: ABDOMINAL PAIN UPPER
     Route: 048
     Dates: start: 2012

REACTIONS (7)
  - Product complaint [Not Recovered/Not Resolved]
  - Malaise [Unknown]
  - Intentional product misuse [Unknown]
  - Intentional product use issue [Unknown]
  - Ulcer [Not Recovered/Not Resolved]
  - Poor quality product administered [Not Recovered/Not Resolved]
  - Recalled product administered [Not Recovered/Not Resolved]
